FAERS Safety Report 25621758 (Version 2)
Quarter: 2025Q3

REPORT INFORMATION
  Report Type: Spontaneous
  Country: US (occurrence: US)
  Receive Date: 20250730
  Receipt Date: 20250825
  Transmission Date: 20251020
  Serious: No
  Sender: BRISTOL-MYERS SQUIBB COMPANY
  Company Number: US-BRISTOL-MYERS SQUIBB COMPANY-2025-105397

PATIENT
  Age: 65 Year
  Sex: Female

DRUGS (1)
  1. REVLIMID [Suspect]
     Active Substance: LENALIDOMIDE
     Indication: Follicular lymphoma
     Dosage: FREQ: DAILY FOR 21 DAYS
     Route: 048

REACTIONS (4)
  - Arthralgia [Not Recovered/Not Resolved]
  - Vision blurred [Unknown]
  - Peripheral swelling [Unknown]
  - Pain in extremity [Unknown]

NARRATIVE: CASE EVENT DATE: 20250701
